FAERS Safety Report 5716624-5 (Version None)
Quarter: 2008Q2

REPORT INFORMATION
  Report Type: 
  Country: None (occurrence: None)
  Receive Date: 20080424
  Receipt Date: 20080418
  Transmission Date: 20081010
  Serious: Yes (Hospitalization)
  Sender: FDA-Public Use
  Company Number: US-KINGPHARMUSA00001-K200800452

PATIENT

DRUGS (7)
  1. ALTACE [Suspect]
     Dates: start: 20040101
  2. KETEK [Suspect]
     Indication: BRONCHITIS
     Dosage: 800 MG, UNK
     Route: 048
     Dates: start: 20071126, end: 20071129
  3. KETEK [Suspect]
     Indication: SINUSITIS
  4. ELISOR [Suspect]
     Route: 048
     Dates: start: 20040101, end: 20071129
  5. KARDEGIC                           /00002703/ [Suspect]
     Route: 048
     Dates: start: 20040101
  6. TENORMIN [Suspect]
     Dates: start: 20040101
  7. ALLOPURINOL [Suspect]
     Dates: start: 19940101

REACTIONS (9)
  - ARTHRALGIA [None]
  - CARPAL TUNNEL SYNDROME [None]
  - HYPOAESTHESIA [None]
  - MYALGIA [None]
  - NEUROPATHY PERIPHERAL [None]
  - OEDEMA PERIPHERAL [None]
  - PAIN IN EXTREMITY [None]
  - PARAESTHESIA [None]
  - RASH PAPULAR [None]
